FAERS Safety Report 22323208 (Version 1)
Quarter: 2023Q2

REPORT INFORMATION
  Report Type: Spontaneous
  Country: DE (occurrence: DE)
  Receive Date: 20230516
  Receipt Date: 20230516
  Transmission Date: 20230722
  Serious: Yes (Hospitalization, Congenital Anomaly, Other)
  Sender: FDA-Public Use
  Company Number: DE-EMBRYOTOX-202108926

PATIENT
  Age: 1 Day
  Sex: Male
  Weight: 2.465 kg

DRUGS (8)
  1. ARIPIPRAZOLE [Suspect]
     Active Substance: ARIPIPRAZOLE
     Indication: Borderline personality disorder
     Dosage: 5 MILLIGRAM, ONCE A DAY
     Route: 064
     Dates: start: 20210120, end: 20211023
  2. BISOPROLOL [Suspect]
     Active Substance: BISOPROLOL
     Indication: Tachyarrhythmia
     Dosage: 3.75 MILLIGRAM, ONCE A DAY
     Route: 064
     Dates: start: 20210120, end: 20211023
  3. SERTRALINE [Suspect]
     Active Substance: SERTRALINE HYDROCHLORIDE
     Indication: Borderline personality disorder
     Dosage: 150 MILLIGRAM, ONCE A DAY
     Route: 064
  4. ACTRAPID [Concomitant]
     Active Substance: INSULIN HUMAN
     Indication: Gestational diabetes
     Dosage: 42 [I.E./D ]/ 38-42 U/D
     Route: 064
  5. COMIRNATY [Concomitant]
     Active Substance: TOZINAMERAN
     Indication: COVID-19 immunisation
     Dosage: UNK
     Route: 064
  6. OMEPRAZOLE [Concomitant]
     Active Substance: OMEPRAZOLE
     Indication: Gastrooesophageal reflux disease
     Dosage: 40 MILLIGRAM, ONCE A DAY
     Route: 064
     Dates: start: 20210120
  7. OXYTOCIN [Concomitant]
     Active Substance: OXYTOCIN
     Indication: Labour induction
     Dosage: UNK
     Route: 064
  8. PROTAPHANE [Concomitant]
     Active Substance: INSULIN HUMAN
     Indication: Gestational diabetes
     Dosage: 18 [I.E./D ]/ 14-18 U/D
     Route: 064

REACTIONS (4)
  - Ventricular septal defect [Not Recovered/Not Resolved]
  - Pulmonary artery stenosis [Not Recovered/Not Resolved]
  - Small for dates baby [Not Recovered/Not Resolved]
  - Foetal exposure during pregnancy [Unknown]

NARRATIVE: CASE EVENT DATE: 20211001
